FAERS Safety Report 5064609-7 (Version None)
Quarter: 2006Q3

REPORT INFORMATION
  Report Type: 
  Country: None (occurrence: None)
  Receive Date: 20060725
  Receipt Date: 20060714
  Transmission Date: 20061208
  Serious: Yes (Hospitalization)
  Sender: FDA-Public Use
  Company Number: 2006BI010016

PATIENT
  Sex: Male

DRUGS (2)
  1. ZEVALIN [Suspect]
     Indication: DRUG USE FOR UNKNOWN INDICATION
     Dosage: 1X; IV
     Route: 042
     Dates: start: 20060627, end: 20060627
  2. RITUXIMAB [Concomitant]

REACTIONS (1)
  - CENTRAL LINE INFECTION [None]
